FAERS Safety Report 20936533 (Version 35)
Quarter: 2024Q4

REPORT INFORMATION
  Report Type: Report from Study
  Country: CA (occurrence: CA)
  Receive Date: 20220609
  Receipt Date: 20241123
  Transmission Date: 20250115
  Serious: Yes (Other)
  Sender: TAKEDA
  Company Number: CA-TAKEDA-2022TUS021135

PATIENT
  Age: 80 Year
  Sex: Female
  Weight: 38.5 kg

DRUGS (34)
  1. TEDUGLUTIDE [Suspect]
     Active Substance: TEDUGLUTIDE
     Indication: Short-bowel syndrome
     Dosage: 1 MILLIGRAM, QD
     Dates: start: 20220328
  2. TEDUGLUTIDE [Suspect]
     Active Substance: TEDUGLUTIDE
     Dosage: 2 MILLIGRAM, QD
  3. TEDUGLUTIDE [Suspect]
     Active Substance: TEDUGLUTIDE
     Dosage: 2 MILLIGRAM, QD
  4. TEDUGLUTIDE [Suspect]
     Active Substance: TEDUGLUTIDE
     Dosage: 0.5 MILLIGRAM, QD
  5. TEDUGLUTIDE [Suspect]
     Active Substance: TEDUGLUTIDE
     Dosage: 0.05 MILLIGRAM/KILOGRAM, QD
  6. TEDUGLUTIDE [Suspect]
     Active Substance: TEDUGLUTIDE
     Dosage: 5 MILLILITER, QD
  7. TEDUGLUTIDE [Suspect]
     Active Substance: TEDUGLUTIDE
     Dosage: 0.4 MILLILITER
  8. TEDUGLUTIDE [Suspect]
     Active Substance: TEDUGLUTIDE
     Dosage: 10 MILLILITER
  9. TEDUGLUTIDE [Suspect]
     Active Substance: TEDUGLUTIDE
     Dosage: 4 MILLIGRAM
  10. TEDUGLUTIDE [Suspect]
     Active Substance: TEDUGLUTIDE
     Dosage: 0.5 MILLIGRAM, QD
  11. CODEINE SULFATE [Suspect]
     Active Substance: CODEINE SULFATE
     Indication: Product used for unknown indication
     Dosage: 7.5 MILLILITER, TID
  12. DICLOFENAC [Suspect]
     Active Substance: DICLOFENAC
     Indication: Product used for unknown indication
     Dosage: 9 MILLILITER, Q6HR
     Dates: start: 20220620
  13. HYLO [Concomitant]
     Dosage: UNK
  14. FUROSEMIDE [Concomitant]
     Active Substance: FUROSEMIDE
     Indication: Product used for unknown indication
     Dosage: 40 MILLIGRAM, BID
  15. JUBLIA [Concomitant]
     Active Substance: EFINACONAZOLE
     Indication: Product used for unknown indication
     Dosage: UNK UNK, QD
     Route: 061
  16. CODEINE PHOSPHATE [Concomitant]
     Active Substance: CODEINE PHOSPHATE
     Indication: Product used for unknown indication
     Dosage: 12 MILLILITER, TID
  17. CODEINE PHOSPHATE [Concomitant]
     Active Substance: CODEINE PHOSPHATE
     Dosage: 4 MILLILITER, QD
  18. CODEINE PHOSPHATE [Concomitant]
     Active Substance: CODEINE PHOSPHATE
     Dosage: 60 MILLIGRAM
  19. CODEINE PHOSPHATE [Concomitant]
     Active Substance: CODEINE PHOSPHATE
     Dosage: 7.5 MILLILITER, TID
  20. CODEINE PHOSPHATE [Concomitant]
     Active Substance: CODEINE PHOSPHATE
     Dosage: UNK
  21. CHILDRENS TYLENOL [Concomitant]
     Active Substance: ACETAMINOPHEN
     Indication: Stoma site pain
     Dosage: 15 MILLILITER
  22. ASPIRIN [Concomitant]
     Active Substance: ASPIRIN
     Indication: Product used for unknown indication
     Dosage: 81 MILLIGRAM, QD
  23. GRAVOL [Concomitant]
     Active Substance: DIMENHYDRINATE
     Indication: Product used for unknown indication
     Dosage: UNK
  24. CITALOPRAM [Concomitant]
     Active Substance: CITALOPRAM
     Indication: Premenstrual syndrome
     Dosage: 60 MILLIGRAM, QD
  25. MORPHINE HYDROCHLORIDE [Concomitant]
     Active Substance: MORPHINE HYDROCHLORIDE
     Dosage: UNK
  26. CODEINE PHOSPHATE ARROW [Concomitant]
     Dosage: UNK
  27. ACETAMINOPHEN [Concomitant]
     Active Substance: ACETAMINOPHEN
     Indication: Premenstrual syndrome
     Dosage: 15 MILLILITER
  28. MINT FUROSEMIDE [Concomitant]
     Indication: Oedema
     Dosage: 40 MILLIGRAM, BID
  29. CALCIUM [Concomitant]
     Active Substance: CALCIUM
     Dosage: UNK UNK, QD
  30. MAGNESIUM [Concomitant]
     Active Substance: MAGNESIUM
     Dosage: UNK UNK, QD
  31. VITAMIN D [Concomitant]
     Active Substance: VITAMIN D NOS
     Dosage: UNK UNK, QD
  32. OLANZAPINE [Concomitant]
     Active Substance: OLANZAPINE
     Dosage: 5 MILLIGRAM
  33. OLANZAPINE [Concomitant]
     Active Substance: OLANZAPINE
     Dosage: 2.5 MILLIGRAM
  34. EFINACONAZOLE [Concomitant]
     Active Substance: EFINACONAZOLE
     Dosage: UNK UNK, QD
     Route: 061

REACTIONS (73)
  - Intestinal obstruction [Recovering/Resolving]
  - Lumbar vertebral fracture [Unknown]
  - Syncope [Unknown]
  - Fall [Not Recovered/Not Resolved]
  - Sepsis [Unknown]
  - Vestibular neuronitis [Recovering/Resolving]
  - Spinal compression fracture [Recovering/Resolving]
  - Neuritis [Not Recovered/Not Resolved]
  - Depressed level of consciousness [Unknown]
  - Malaise [Recovered/Resolved]
  - Fatigue [Not Recovered/Not Resolved]
  - Vision blurred [Not Recovered/Not Resolved]
  - Faeces hard [Recovered/Resolved]
  - Defaecation urgency [Recovered/Resolved]
  - Hiccups [Not Recovered/Not Resolved]
  - Lethargy [Not Recovered/Not Resolved]
  - Stress [Recovering/Resolving]
  - Stoma site pain [Recovering/Resolving]
  - Peripheral swelling [Not Recovered/Not Resolved]
  - Joint swelling [Recovered/Resolved]
  - Asthenia [Not Recovered/Not Resolved]
  - Stoma site dermatitis [Recovering/Resolving]
  - Depression [Not Recovered/Not Resolved]
  - Hot flush [Recovering/Resolving]
  - Weight decreased [Unknown]
  - Device leakage [Recovered/Resolved]
  - Medication error [Unknown]
  - Incorrect dose administered [Unknown]
  - Abdominal pain upper [Recovered/Resolved]
  - Decreased appetite [Not Recovered/Not Resolved]
  - Flatulence [Not Recovered/Not Resolved]
  - Vomiting [Recovered/Resolved]
  - Nausea [Recovered/Resolved]
  - Headache [Recovering/Resolving]
  - Abdominal distension [Recovering/Resolving]
  - Joint dislocation [Not Recovered/Not Resolved]
  - Abdominal discomfort [Unknown]
  - Diarrhoea [Not Recovered/Not Resolved]
  - Gastrointestinal stoma output abnormal [Recovering/Resolving]
  - Stoma site inflammation [Recovering/Resolving]
  - Contusion [Not Recovered/Not Resolved]
  - Pain [Not Recovered/Not Resolved]
  - Hypoglycaemia [Recovering/Resolving]
  - Brain fog [Not Recovered/Not Resolved]
  - Compression fracture [Unknown]
  - Obstructive defaecation [Not Recovered/Not Resolved]
  - Frequent bowel movements [Unknown]
  - Balance disorder [Recovering/Resolving]
  - Mobility decreased [Recovering/Resolving]
  - Underweight [Not Recovered/Not Resolved]
  - Back pain [Not Recovered/Not Resolved]
  - Apathy [Not Recovered/Not Resolved]
  - Mood swings [Not Recovered/Not Resolved]
  - Body temperature increased [Unknown]
  - Eructation [Not Recovered/Not Resolved]
  - Feeding disorder [Unknown]
  - Vertigo positional [Not Recovered/Not Resolved]
  - Night sweats [Unknown]
  - Nightmare [Unknown]
  - Weight increased [Unknown]
  - Eye disorder [Recovering/Resolving]
  - Drug intolerance [Unknown]
  - Weight fluctuation [Unknown]
  - Anxiety [Unknown]
  - Hypersomnia [Not Recovered/Not Resolved]
  - Rash [Unknown]
  - Oedema peripheral [Unknown]
  - Insomnia [Unknown]
  - Cough [Unknown]
  - Gastrointestinal stoma complication [Unknown]
  - Muscle spasms [Recovering/Resolving]
  - Product dose omission issue [Unknown]
  - Wrong technique in product usage process [Not Recovered/Not Resolved]

NARRATIVE: CASE EVENT DATE: 20220328
